FAERS Safety Report 15747265 (Version 1)
Quarter: 2018Q4

REPORT INFORMATION
  Report Type: Spontaneous
  Country: US (occurrence: US)
  Receive Date: 20181220
  Receipt Date: 20181220
  Transmission Date: 20190205
  Serious: No
  Sender: FDA-Public Use
  Company Number: US-AVADEL SPECIALTY PHARMACEUTICALS, LLC-2018AVA00414

PATIENT
  Age: 75 Year
  Sex: Male
  Weight: 92.06 kg

DRUGS (5)
  1. LISINOPRIL. [Concomitant]
     Active Substance: LISINOPRIL
  2. NOCTIVA [Suspect]
     Active Substance: DESMOPRESSIN ACETATE
     Indication: URINARY INCONTINENCE
     Dosage: 0.83 ?G, 1X/DAY APPROXIMATELY 30 MINUTES BEFORE BEDTIME
     Route: 045
     Dates: start: 20181003, end: 20181003
  3. MELOXICAM. [Concomitant]
     Active Substance: MELOXICAM
  4. OMEPRAZOLE. [Concomitant]
     Active Substance: OMEPRAZOLE
  5. NOCTIVA [Suspect]
     Active Substance: DESMOPRESSIN ACETATE
     Dosage: 0.83 ?G, 1X/DAY APPROXIMATELY 30 MINUTES BEFORE BEDTIME
     Route: 045
     Dates: start: 20181005, end: 20181005

REACTIONS (10)
  - Headache [Not Recovered/Not Resolved]
  - Nasal congestion [Not Recovered/Not Resolved]
  - Oropharyngeal pain [Unknown]
  - Viral infection [Unknown]
  - Burning sensation [Recovering/Resolving]
  - Feeling abnormal [Unknown]
  - Rhinorrhoea [Not Recovered/Not Resolved]
  - Hyperacusis [Unknown]
  - Off label use [Recovered/Resolved]
  - Nasal discomfort [Recovering/Resolving]

NARRATIVE: CASE EVENT DATE: 2018
